FAERS Safety Report 15474027 (Version 5)
Quarter: 2019Q3

REPORT INFORMATION
  Report Type: Spontaneous
  Country: US (occurrence: US)
  Receive Date: 20181008
  Receipt Date: 20190906
  Transmission Date: 20191004
  Serious: Yes (Other)
  Sender: FDA-Public Use
  Company Number: US-SA-2018SA274572

PATIENT
  Age: 53 Year
  Sex: Female

DRUGS (2)
  1. LEMTRADA [Suspect]
     Active Substance: ALEMTUZUMAB
     Dosage: UNK UNK, UNK
     Route: 041
     Dates: start: 2019, end: 201908
  2. LEMTRADA [Suspect]
     Active Substance: ALEMTUZUMAB
     Indication: MULTIPLE SCLEROSIS
     Dosage: 12 MG, UNK
     Route: 041
     Dates: start: 201803

REACTIONS (6)
  - White blood cell count abnormal [Unknown]
  - Neutrophil count decreased [Unknown]
  - Neutropenia [Unknown]
  - Nitrite urine present [Unknown]
  - Urinary tract infection [Unknown]
  - Protein urine present [Unknown]

NARRATIVE: CASE EVENT DATE: 201908
